FAERS Safety Report 18555698 (Version 3)
Quarter: 2021Q1

REPORT INFORMATION
  Report Type: Spontaneous
  Country: JP (occurrence: JP)
  Receive Date: 20201127
  Receipt Date: 20210329
  Transmission Date: 20210419
  Serious: Yes (Hospitalization, Other)
  Sender: FDA-Public Use
  Company Number: JP-EXELIXIS-CABO-20034022

PATIENT
  Age: 76 Year
  Sex: Female

DRUGS (5)
  1. CABOMETYX [Suspect]
     Active Substance: CABOZANTINIB S-MALATE
     Indication: RENAL CELL CARCINOMA
     Dosage: 40 MG, QD
     Route: 048
     Dates: start: 20200918, end: 20201104
  2. CABOMETYX [Suspect]
     Active Substance: CABOZANTINIB S-MALATE
     Dosage: 40 MG, QD
     Route: 048
     Dates: start: 20201202, end: 20201231
  3. CABOMETYX [Suspect]
     Active Substance: CABOZANTINIB S-MALATE
     Dosage: 20 MG, QD
     Route: 048
     Dates: start: 20210204
  4. TAKECAB [Concomitant]
     Active Substance: VONOPRAZAN FUMARATE
     Dosage: UNK
     Route: 065
  5. TAKECAB [Concomitant]
     Active Substance: VONOPRAZAN FUMARATE
     Dosage: UNK
     Route: 065

REACTIONS (12)
  - Adrenal insufficiency [Recovering/Resolving]
  - Malnutrition [Recovering/Resolving]
  - Hypertension [Not Recovered/Not Resolved]
  - Taste disorder [Unknown]
  - Pulmonary mass [Unknown]
  - Hepatic function abnormal [Unknown]
  - Pyrexia [Recovering/Resolving]
  - Hypothyroidism [Recovered/Resolved]
  - Decreased appetite [Recovering/Resolving]
  - Ascites [Unknown]
  - Pleural effusion [Recovering/Resolving]
  - Palmar-plantar erythrodysaesthesia syndrome [Not Recovered/Not Resolved]

NARRATIVE: CASE EVENT DATE: 20200925
